FAERS Safety Report 12999495 (Version 2)
Quarter: 2016Q4

REPORT INFORMATION
  Report Type: Spontaneous
  Country: CH (occurrence: CH)
  Receive Date: 20161205
  Receipt Date: 20161209
  Transmission Date: 20170207
  Serious: Yes (Life-Threatening, Hospitalization)
  Sender: FDA-Public Use
  Company Number: CH-PFIZER INC-2016555689

PATIENT
  Age: 79 Year
  Sex: Male

DRUGS (12)
  1. LEFLUNOMID [Interacting]
     Active Substance: LEFLUNOMIDE
     Dosage: 20 MG, 1X/DAY
     Route: 048
     Dates: start: 2016, end: 20161029
  2. MARCOUMAR [Concomitant]
     Active Substance: PHENPROCOUMON
     Route: 048
  3. LEFLUNOMID [Interacting]
     Active Substance: LEFLUNOMIDE
     Indication: RHEUMATOID ARTHRITIS
     Dosage: UNK
     Route: 048
     Dates: start: 2016, end: 20160723
  4. TOFACITINIB CITRATE [Suspect]
     Active Substance: TOFACITINIB CITRATE
     Indication: RHEUMATOID ARTHRITIS
     Dosage: UNK
     Route: 048
     Dates: start: 2016, end: 20160723
  5. PREDNISON [Interacting]
     Active Substance: PREDNISONE
     Indication: RHEUMATOID ARTHRITIS
     Dosage: 20 MG, DAILY
     Route: 048
     Dates: start: 20160729, end: 2016
  6. LISINOPRIL. [Concomitant]
     Active Substance: LISINOPRIL
     Route: 048
  7. TOFACITINIB CITRATE [Interacting]
     Active Substance: TOFACITINIB CITRATE
     Dosage: UNK
     Route: 048
     Dates: start: 2016, end: 20161027
  8. PREDNISON [Interacting]
     Active Substance: PREDNISONE
     Dosage: UNK
     Route: 048
     Dates: start: 2016, end: 20161027
  9. BILOL [Concomitant]
     Active Substance: BISOPROLOL
     Route: 048
  10. PANTOPRAZOL [Concomitant]
     Active Substance: PANTOPRAZOLE SODIUM
     Route: 048
  11. PREDNISON [Interacting]
     Active Substance: PREDNISONE
     Dosage: 5 MG, DAILY
     Route: 048
     Dates: start: 20160817, end: 2016
  12. ROCALTROL [Concomitant]
     Active Substance: CALCITRIOL
     Route: 048

REACTIONS (5)
  - Pneumonia [Not Recovered/Not Resolved]
  - Drug interaction [Unknown]
  - Septic shock [Recovered/Resolved]
  - Lung abscess [Not Recovered/Not Resolved]
  - Pneumonia necrotising [Unknown]

NARRATIVE: CASE EVENT DATE: 20160723
